FAERS Safety Report 7129628-5 (Version None)
Quarter: 2010Q4

REPORT INFORMATION
  Report Type: 
  Country: None (occurrence: None)
  Receive Date: 20101130
  Receipt Date: 20101125
  Transmission Date: 20110411
  Serious: Yes (Life-Threatening, Hospitalization, Other)
  Sender: FDA-Public Use
  Company Number: AR-PFIZER INC-2010149508

PATIENT
  Age: 38 Year
  Sex: Male

DRUGS (5)
  1. CHAMPIX [Suspect]
     Indication: SMOKING CESSATION THERAPY
     Dosage: UNK
     Dates: start: 20101105
  2. CLONAZEPAM [Suspect]
  3. BENZODIAZEPINE DERIVATIVES [Suspect]
  4. PHENERGAN [Suspect]
  5. AMPLIACTIL [Suspect]

REACTIONS (5)
  - CARDIAC ARREST [None]
  - COMA [None]
  - PNEUMONIA ASPIRATION [None]
  - RESPIRATORY ARREST [None]
  - SUICIDE ATTEMPT [None]
